FAERS Safety Report 24696925 (Version 1)
Quarter: 2024Q4

REPORT INFORMATION
  Report Type: Other
  Country: CA (occurrence: CA)
  Receive Date: 20241204
  Receipt Date: 20241204
  Transmission Date: 20250115
  Serious: No
  Sender: TOLMAR
  Company Number: CA-TOLMAR, INC.-24CA054026

PATIENT
  Age: 88 Year
  Sex: Male

DRUGS (2)
  1. ELIGARD [Suspect]
     Active Substance: LEUPROLIDE ACETATE
     Indication: Prostate cancer
     Dosage: 22.5 MILLIGRAM, Q 3 MONTH
     Route: 058
     Dates: start: 20241006
  2. ELIGARD [Suspect]
     Active Substance: LEUPROLIDE ACETATE
     Indication: Prostate cancer
     Dosage: UNK

REACTIONS (8)
  - Proctalgia [Unknown]
  - Penile pain [Unknown]
  - Pyrexia [Unknown]
  - Micturition urgency [Unknown]
  - Urinary incontinence [Unknown]
  - Constipation [Unknown]
  - Pollakiuria [Unknown]
  - Oliguria [Unknown]

NARRATIVE: CASE EVENT DATE: 20241020
